FAERS Safety Report 18288784 (Version 4)
Quarter: 2022Q2

REPORT INFORMATION
  Report Type: Spontaneous
  Country: US (occurrence: US)
  Receive Date: 20200921
  Receipt Date: 20220414
  Transmission Date: 20220721
  Serious: Yes (Other)
  Sender: FDA-Public Use
  Company Number: US-PFIZER INC-2018029129

PATIENT
  Age: 73 Year
  Sex: Female

DRUGS (2)
  1. LYRICA [Suspect]
     Active Substance: PREGABALIN
     Dosage: 750 MG, DAILY (150 MG P.O. 5X DAILY)
     Route: 048
  2. LYRICA [Suspect]
     Active Substance: PREGABALIN
     Dosage: 150 MG, FOUR TIMES A DAY
     Route: 048

REACTIONS (4)
  - Neuropathy peripheral [Unknown]
  - Speech disorder [Unknown]
  - Pain [Unknown]
  - Prescribed overdose [Unknown]
